FAERS Safety Report 15487042 (Version 1)
Quarter: 2018Q4

REPORT INFORMATION
  Report Type: Spontaneous
  Country: US (occurrence: US)
  Receive Date: 20181010
  Receipt Date: 20181010
  Transmission Date: 20190205
  Serious: Yes (Other)
  Sender: FDA-Public Use
  Company Number: None

PATIENT
  Age: 58 Year
  Sex: Male
  Weight: 102.06 kg

DRUGS (13)
  1. HYDROCHLOROTHIAZIDE. [Concomitant]
     Active Substance: HYDROCHLOROTHIAZIDE
  2. SPIROLOLACTONE [Concomitant]
  3. FUROSEMIDE. [Concomitant]
     Active Substance: FUROSEMIDE
  4. PROPRANOLOL HCL [Concomitant]
     Active Substance: PROPRANOLOL HYDROCHLORIDE
  5. LANTUS [Concomitant]
     Active Substance: INSULIN GLARGINE
  6. ASPIRIN. [Concomitant]
     Active Substance: ASPIRIN
  7. DILTIAZEM. [Concomitant]
     Active Substance: DILTIAZEM
  8. ALPRAZOLAM. [Concomitant]
     Active Substance: ALPRAZOLAM
  9. MORPHINE [Concomitant]
     Active Substance: MORPHINE
  10. MULTIVITAMIN [Concomitant]
     Active Substance: VITAMINS
  11. ROSUVASTATIN. [Concomitant]
     Active Substance: ROSUVASTATIN
  12. PRIALT [Suspect]
     Active Substance: ZICONOTIDE ACETATE
     Indication: PAIN
     Dosage: QUANTITY:4 MY MORPHINE PUMP; CONSTANT FLOW, A CATHETER THAT GOES IN MY SPINE?
  13. NOVOLOG [Concomitant]
     Active Substance: INSULIN ASPART

REACTIONS (13)
  - Hypoaesthesia [None]
  - Poor quality device used [None]
  - Insomnia [None]
  - Nightmare [None]
  - Mental disorder [None]
  - Amnesia [None]
  - Product complaint [None]
  - Feeling abnormal [None]
  - Medical device site swelling [None]
  - Feeding disorder [None]
  - Diarrhoea [None]
  - Arthritis [None]
  - Feeling drunk [None]

NARRATIVE: CASE EVENT DATE: 20180831
